FAERS Safety Report 5098031-4 (Version None)
Quarter: 2006Q3

REPORT INFORMATION
  Report Type: 
  Country: None (occurrence: None)
  Receive Date: 20060906
  Receipt Date: 20060825
  Transmission Date: 20061208
  Serious: Yes (Hospitalization)
  Sender: FDA-Public Use
  Company Number: US-AVENTIS-200617276US

PATIENT
  Sex: Female
  Weight: 55 kg

DRUGS (2)
  1. TAXOTERE [Suspect]
     Indication: BREAST CANCER METASTATIC
     Dosage: DOSE: 4 CYCLES
     Dates: start: 20021001, end: 20021201
  2. PERIACTIN [Concomitant]
     Indication: URTICARIA THERMAL
     Dosage: DOSE: UNK

REACTIONS (11)
  - AUTOIMMUNE THYROIDITIS [None]
  - CHEST PAIN [None]
  - CONDUCTION DISORDER [None]
  - DYSPHONIA [None]
  - DYSPNOEA [None]
  - FATIGUE [None]
  - GAIT DISTURBANCE [None]
  - NEUROPATHY PERIPHERAL [None]
  - PANCREATITIS ACUTE [None]
  - SINUS TACHYCARDIA [None]
  - TACHYCARDIA [None]
